FAERS Safety Report 8374497-9 (Version None)
Quarter: 2012Q2

REPORT INFORMATION
  Report Type: 
  Country: None (occurrence: None)
  Receive Date: 20120521
  Receipt Date: 20120515
  Transmission Date: 20120825
  Serious: Yes (Other)
  Sender: FDA-Public Use
  Company Number: FR-PFIZER INC-2012117439

PATIENT
  Age: 72 Year
  Sex: Female

DRUGS (1)
  1. RAPAMUNE [Suspect]
     Dosage: 2 MG, UNK
     Dates: start: 20010101

REACTIONS (5)
  - MOUTH ULCERATION [None]
  - BREAST CANCER [None]
  - HEADACHE [None]
  - CONSTIPATION [None]
  - ABDOMINAL PAIN UPPER [None]
